FAERS Safety Report 21678848 (Version 3)
Quarter: 2023Q1

REPORT INFORMATION
  Report Type: Spontaneous
  Country: US (occurrence: US)
  Receive Date: 20221204
  Receipt Date: 20230105
  Transmission Date: 20230418
  Serious: No
  Sender: FDA-Public Use
  Company Number: US-JNJFOC-20221161973

PATIENT
  Age: 54 Year
  Sex: Male
  Weight: 81.720 kg

DRUGS (1)
  1. TREMFYA [Suspect]
     Active Substance: GUSELKUMAB
     Indication: Product used for unknown indication
     Route: 065

REACTIONS (5)
  - Syringe issue [Unknown]
  - Product dose omission issue [Unknown]
  - Needle issue [Unknown]
  - Discomfort [Unknown]
  - Psoriasis [Unknown]
